FAERS Safety Report 9890580 (Version 1)
Quarter: 2014Q1

REPORT INFORMATION
  Report Type: Spontaneous
  Country: US (occurrence: None)
  Receive Date: 20140210
  Receipt Date: 20140210
  Transmission Date: 20141002
  Serious: Yes (Life-Threatening, Hospitalization)
  Sender: FDA-Public Use
  Company Number: None

PATIENT
  Age: 61 Year
  Sex: Male
  Weight: 100.4 kg

DRUGS (1)
  1. IODIXANOL [Suspect]
     Indication: ANGIOGRAM
     Route: 042
     Dates: start: 20140204, end: 20140204

REACTIONS (2)
  - Dyspnoea [None]
  - Hypotension [None]
